FAERS Safety Report 5289086-2 (Version None)
Quarter: 2007Q1

REPORT INFORMATION
  Report Type: 
  Country: None (occurrence: None)
  Receive Date: 20070122
  Receipt Date: 20060220
  Transmission Date: 20070707
  Serious: Yes (Other)
  Sender: FDA-Public Use
  Company Number: PHEH2006US02376

PATIENT
  Age: 46 Year
  Sex: Female

DRUGS (7)
  1. SANDOSTATIN LAR [Suspect]
     Indication: POST PROCEDURAL DIARRHOEA
     Dosage: 30 MG, PRN, INJECTION NOS
     Dates: start: 20050914
  2. TAXOTERE [Concomitant]
  3. ELLENCE [Concomitant]
  4. CYCLOPHOSPHAMIDE [Concomitant]
  5. ZOFRAN [Concomitant]
  6. NEUPOGEN [Concomitant]
  7. ARANESP [Concomitant]

REACTIONS (1)
  - CONVULSION [None]
